FAERS Safety Report 7935373-6 (Version None)
Quarter: 2011Q4

REPORT INFORMATION
  Report Type: 
  Country: None (occurrence: None)
  Receive Date: 20111122
  Receipt Date: 20111117
  Transmission Date: 20120403
  Serious: No
  Sender: FDA-Public Use
  Company Number: US-B.I. PHARMACEUTICALS,INC./RIDGEFIELD-2011-BP-26531BP

PATIENT
  Sex: Female

DRUGS (18)
  1. ASPIRIN [Concomitant]
     Indication: CARDIAC DISORDER
     Dosage: 162 MG
     Route: 048
  2. VITAMIN D [Concomitant]
     Indication: SUPPLEMENTATION THERAPY
     Route: 048
  3. LEVOTHYROXINE SODIUM [Concomitant]
     Indication: THYROID DISORDER
     Dosage: 25 MG
     Route: 048
  4. COENZYME Q10 [Concomitant]
     Indication: SUPPLEMENTATION THERAPY
     Dosage: 300 MG
     Route: 048
  5. CLARITIN [Concomitant]
     Route: 048
  6. AMBIEN [Concomitant]
     Indication: SLEEP DISORDER
     Dosage: 10 MG
     Route: 048
  7. EVISTA [Concomitant]
     Indication: BONE DENSITY DECREASED
     Dosage: 50 MG
     Route: 048
  8. FERROUS SULFATE TAB [Concomitant]
     Indication: SUPPLEMENTATION THERAPY
     Route: 048
  9. HYDROCODONE BITARTRATE [Concomitant]
     Indication: PROCEDURAL PAIN
     Route: 048
  10. NEXIUM [Suspect]
     Indication: GASTROOESOPHAGEAL REFLUX DISEASE
     Dosage: 40 MG
     Route: 048
  11. GLIPIZIDE [Concomitant]
     Indication: TYPE 2 DIABETES MELLITUS
     Dosage: 10 MG
     Route: 048
  12. ATACAND [Concomitant]
     Indication: BLOOD PRESSURE ABNORMAL
     Dosage: 32 MG
     Route: 048
  13. TRADJENTA [Suspect]
     Indication: TYPE 2 DIABETES MELLITUS
     Dosage: 5 MG
     Route: 048
     Dates: start: 20111114
  14. EVISTA [Concomitant]
     Indication: OSTEOPOROSIS
  15. ZETIA [Concomitant]
     Indication: BLOOD CHOLESTEROL ABNORMAL
     Dosage: 10 MG
     Route: 048
  16. MAGNESIUM [Concomitant]
     Indication: SUPPLEMENTATION THERAPY
     Dosage: 500 MG
     Route: 048
  17. FENOFIBRATE (MICRONIZED) [Concomitant]
     Indication: BLOOD CHOLESTEROL ABNORMAL
     Dosage: 134 MG
     Route: 048
  18. VITAMIN B-12 [Concomitant]
     Indication: SUPPLEMENTATION THERAPY
     Dosage: 1000 MCG
     Route: 048

REACTIONS (3)
  - DYSPEPSIA [None]
  - ERUCTATION [None]
  - DECREASED APPETITE [None]
